FAERS Safety Report 17855575 (Version 1)
Quarter: 2020Q2

REPORT INFORMATION
  Report Type: Spontaneous
  Country: US (occurrence: US)
  Receive Date: 20200602
  Receipt Date: 20200602
  Transmission Date: 20200714
  Serious: No
  Sender: FDA-Public Use
  Company Number: None

PATIENT
  Sex: Female

DRUGS (1)
  1. HUMIRA [Suspect]
     Active Substance: ADALIMUMAB
     Indication: CROHN^S DISEASE
     Dosage: OTHER DOSE:160MG, 80MG, 40MG;OTHER FREQUENCY:1DA, 15DA, QOW;?
     Route: 058
     Dates: start: 202005

REACTIONS (1)
  - Rash [None]
